FAERS Safety Report 4725006-4 (Version None)
Quarter: 2005Q3

REPORT INFORMATION
  Report Type: 
  Country: None (occurrence: None)
  Receive Date: 20050722
  Receipt Date: 20050712
  Transmission Date: 20060218
  Serious: Yes (Life-Threatening, Hospitalization, Other)
  Sender: FDA-Public Use
  Company Number: 2005-05-0626

PATIENT
  Age: 69 Year
  Sex: Female
  Weight: 47 kg

DRUGS (10)
  1. PEG-INTRON [Suspect]
     Indication: HEPATITIS C
     Dosage: 80 MCG QW; SUBCUTANEOUS
     Route: 058
     Dates: start: 20050330, end: 20050427
  2. REBETOL [Suspect]
     Indication: HEPATITIS C
     Dosage: SEE IMAGE
     Route: 048
     Dates: start: 20050330, end: 20050419
  3. REBETOL [Suspect]
     Indication: HEPATITIS C
     Dosage: SEE IMAGE
     Route: 048
     Dates: start: 20050420, end: 20050429
  4. REBETOL [Suspect]
     Indication: HEPATITIS C
     Dosage: SEE IMAGE
     Route: 048
     Dates: start: 20050420, end: 20050429
  5. PEGASYS [Suspect]
     Indication: HEPATITIS C
     Dosage: 180 MCG; SUBCUTANEOUS
     Route: 058
     Dates: start: 20050126, end: 20050323
  6. EDARAVONE (NORPHENAZONE) INJECTABLE [Suspect]
     Dosage: INTRAVENOUS
     Route: 042
     Dates: start: 20050430, end: 20050514
  7. URSO TABLETS [Concomitant]
  8. CONIEL (BENIDIPINE HCL) TABLETS [Concomitant]
  9. GLYCEOL [Concomitant]
  10. CEFAZOLIN SODIUM [Concomitant]

REACTIONS (17)
  - ASTHENIA [None]
  - BRONCHITIS [None]
  - CEREBRAL HAEMORRHAGE [None]
  - CEREBRAL INFARCTION [None]
  - DISSEMINATED INTRAVASCULAR COAGULATION [None]
  - FALL [None]
  - HAEMOGLOBIN DECREASED [None]
  - HAEMORRHAGIC DIATHESIS [None]
  - HEPATIC CIRRHOSIS [None]
  - INFECTION [None]
  - LOSS OF CONSCIOUSNESS [None]
  - PLATELET COUNT INCREASED [None]
  - PNEUMONIA [None]
  - RENAL FAILURE [None]
  - RESPIRATORY ARREST [None]
  - STAPHYLOCOCCAL INFECTION [None]
  - UNRESPONSIVE TO PAIN STIMULI [None]
